FAERS Safety Report 10007155 (Version 1)
Quarter: 2014Q1

REPORT INFORMATION
  Report Type: Spontaneous
  Country: US (occurrence: None)
  Receive Date: 20140312
  Receipt Date: 20140312
  Transmission Date: 20141002
  Serious: Yes (Other)
  Sender: FDA-Public Use
  Company Number: None

PATIENT
  Sex: Female

DRUGS (3)
  1. VELCADE [Suspect]
     Indication: PLASMA CELL MYELOMA
     Route: 058
     Dates: start: 20131015
  2. CYTOXAN [Suspect]
     Indication: PLASMA CELL MYELOMA
     Dates: start: 20131015, end: 20140131
  3. DEXAMETHASONE [Concomitant]

REACTIONS (4)
  - Injection site nodule [None]
  - Injection site discolouration [None]
  - Injection site dryness [None]
  - Product quality issue [None]
